FAERS Safety Report 12440745 (Version 4)
Quarter: 2019Q1

REPORT INFORMATION
  Report Type: Report from Study
  Country: JP (occurrence: JP)
  Receive Date: 20160606
  Receipt Date: 20190109
  Transmission Date: 20190417
  Serious: Yes (Other)
  Sender: FDA-Public Use
  Company Number: JP-AMGEN-JPNCT2016072062

PATIENT
  Age: 78 Year
  Sex: Female

DRUGS (52)
  1. 5-FU [Suspect]
     Active Substance: FLUOROURACIL
     Dosage: 1000 MG, UNK
     Route: 041
     Dates: start: 20160427, end: 20160429
  2. 5-FU [Suspect]
     Active Substance: FLUOROURACIL
     Dosage: 1000 MG, UNK
     Route: 041
     Dates: start: 20160615, end: 20160617
  3. CAMPTO [Suspect]
     Active Substance: IRINOTECAN
     Dosage: UNK
     Route: 041
  4. CAMPTO [Suspect]
     Active Substance: IRINOTECAN
     Dosage: 110 MG
     Route: 041
     Dates: start: 20160427, end: 20160427
  5. LEVOFOLINATE [Suspect]
     Active Substance: LEVOLEUCOVORIN CALCIUM
     Dosage: 270 MG, UNK
     Route: 041
     Dates: start: 20160615, end: 20160615
  6. ELPLAT [Suspect]
     Active Substance: OXALIPLATIN
     Dosage: 70 MG, UNK
     Route: 041
     Dates: start: 20160427, end: 20160427
  7. HERBAL NOS [Concomitant]
     Active Substance: HERBALS
     Indication: PRODUCT USED FOR UNKNOWN INDICATION
     Dosage: UNK
     Route: 048
  8. CELECOX [Concomitant]
     Active Substance: CELECOXIB
     Indication: PRODUCT USED FOR UNKNOWN INDICATION
     Dosage: UNK
     Route: 048
  9. DEXART [Concomitant]
     Active Substance: DEXAMETHASONE SODIUM PHOSPHATE
     Indication: PRODUCT USED FOR UNKNOWN INDICATION
     Dosage: UNK
     Route: 042
  10. 5-FU [Suspect]
     Active Substance: FLUOROURACIL
     Indication: PANCREATIC CARCINOMA STAGE IV
     Dosage: UNK
     Route: 041
  11. 5-FU [Suspect]
     Active Substance: FLUOROURACIL
     Dosage: UNK
     Route: 041
  12. 5-FU [Suspect]
     Active Substance: FLUOROURACIL
     Dosage: UNK
     Route: 041
  13. LEVOFOLINATE [Suspect]
     Active Substance: LEVOLEUCOVORIN CALCIUM
     Dosage: UNK
     Route: 041
  14. GOSHAJINKIGAN [Concomitant]
     Active Substance: HERBALS
     Indication: PRODUCT USED FOR UNKNOWN INDICATION
     Dosage: UNK
     Route: 048
  15. BUSCOPAN [Concomitant]
     Active Substance: BUTYLSCOPOLAMINE BROMIDE
     Indication: PRODUCT USED FOR UNKNOWN INDICATION
     Dosage: UNK
     Route: 042
  16. LEVOFOLINATE [Suspect]
     Active Substance: LEVOLEUCOVORIN CALCIUM
     Dosage: UNK
     Route: 041
  17. PEGFILGRASTIM [Suspect]
     Active Substance: PEGFILGRASTIM
     Indication: COLONY STIMULATING FACTOR THERAPY
     Dosage: 3.6 MG, UNK
     Route: 058
     Dates: start: 20160430, end: 20160430
  18. LEVOFOLINATE [Suspect]
     Active Substance: LEVOLEUCOVORIN CALCIUM
     Indication: PANCREATIC CARCINOMA STAGE IV
     Dosage: UNK
     Route: 041
  19. ELPLAT [Suspect]
     Active Substance: OXALIPLATIN
     Dosage: UNK
     Route: 041
  20. METHYCOBAL [Concomitant]
     Active Substance: METHYLCOBALAMIN
     Indication: PRODUCT USED FOR UNKNOWN INDICATION
     Dosage: UNK
     Route: 048
  21. FAMOTIDINE. [Concomitant]
     Active Substance: FAMOTIDINE
     Indication: PRODUCT USED FOR UNKNOWN INDICATION
     Dosage: UNK
     Route: 048
  22. LIXIANA [Concomitant]
     Active Substance: EDOXABAN TOSYLATE
     Indication: EMBOLISM
     Dosage: UNK
     Route: 048
  23. ALOXI [Concomitant]
     Active Substance: PALONOSETRON HYDROCHLORIDE
     Indication: PRODUCT USED FOR UNKNOWN INDICATION
     Dosage: UNK
     Route: 042
  24. 5-FU [Suspect]
     Active Substance: FLUOROURACIL
     Dosage: 1000 MG, UNK
     Route: 041
     Dates: start: 20160601, end: 20160603
  25. CAMPTO [Suspect]
     Active Substance: IRINOTECAN
     Indication: PANCREATIC CARCINOMA STAGE IV
     Dosage: UNK
     Route: 041
  26. CAMPTO [Suspect]
     Active Substance: IRINOTECAN
     Dosage: UNK
     Route: 041
  27. CAMPTO [Suspect]
     Active Substance: IRINOTECAN
     Dosage: 110 MG
     Route: 041
     Dates: start: 20160511, end: 20160511
  28. CAMPTO [Suspect]
     Active Substance: IRINOTECAN
     Dosage: 110 MG
     Route: 041
     Dates: start: 20160615, end: 20160615
  29. LEVOFOLINATE [Suspect]
     Active Substance: LEVOLEUCOVORIN CALCIUM
     Dosage: UNK
     Route: 041
  30. LEVOFOLINATE [Suspect]
     Active Substance: LEVOLEUCOVORIN CALCIUM
     Dosage: 270 MG, UNK
     Route: 041
     Dates: start: 20160427, end: 20160427
  31. LEVOFOLINATE [Suspect]
     Active Substance: LEVOLEUCOVORIN CALCIUM
     Dosage: 270 MG, UNK
     Route: 041
     Dates: start: 20160511, end: 20160511
  32. LEVOFOLINATE [Suspect]
     Active Substance: LEVOLEUCOVORIN CALCIUM
     Dosage: 270 MG, UNK
     Route: 041
     Dates: start: 20160601, end: 20160601
  33. ELPLAT [Suspect]
     Active Substance: OXALIPLATIN
     Dosage: 70 MG, UNK
     Route: 041
     Dates: start: 20160511, end: 20160511
  34. PROEMEND [Concomitant]
     Active Substance: FOSAPREPITANT
     Indication: PRODUCT USED FOR UNKNOWN INDICATION
     Dosage: UNK
     Route: 042
  35. POLARAMINE [Concomitant]
     Active Substance: DEXCHLORPHENIRAMINE MALEATE
     Indication: PRODUCT USED FOR UNKNOWN INDICATION
     Dosage: UNK
     Route: 042
  36. PEGFILGRASTIM [Suspect]
     Active Substance: PEGFILGRASTIM
     Dosage: 3.6 MG, UNK
     Route: 058
     Dates: start: 20160514, end: 20160514
  37. PEGFILGRASTIM [Suspect]
     Active Substance: PEGFILGRASTIM
     Dosage: 3.6 MG, UNK
     Route: 058
     Dates: start: 20160618, end: 20160618
  38. 5-FU [Suspect]
     Active Substance: FLUOROURACIL
     Dosage: 1000 MG, UNK
     Route: 041
     Dates: start: 20160511, end: 20160513
  39. CAMPTO [Suspect]
     Active Substance: IRINOTECAN
     Dosage: 110 MG
     Route: 041
     Dates: start: 20160601, end: 20160601
  40. LEVOFOLINATE [Suspect]
     Active Substance: LEVOLEUCOVORIN CALCIUM
     Dosage: UNK
     Route: 041
  41. ELPLAT [Suspect]
     Active Substance: OXALIPLATIN
     Indication: PANCREATIC CARCINOMA STAGE IV
     Dosage: UNK
     Route: 041
  42. ELPLAT [Suspect]
     Active Substance: OXALIPLATIN
     Dosage: UNK
     Route: 041
  43. PEGFILGRASTIM [Suspect]
     Active Substance: PEGFILGRASTIM
     Dosage: 3.6 MG, UNK
     Route: 058
     Dates: start: 20160604, end: 20160604
  44. 5-FU [Suspect]
     Active Substance: FLUOROURACIL
     Dosage: UNK
     Route: 041
  45. CAMPTO [Suspect]
     Active Substance: IRINOTECAN
     Dosage: UNK
     Route: 041
  46. URSO [Concomitant]
     Active Substance: URSODIOL
     Indication: PRODUCT USED FOR UNKNOWN INDICATION
     Dosage: UNK
     Route: 048
  47. CAMPTO [Suspect]
     Active Substance: IRINOTECAN
     Dosage: UNK
     Route: 041
  48. ELPLAT [Suspect]
     Active Substance: OXALIPLATIN
     Dosage: UNK
     Route: 041
  49. DAIKENCHUTO [Concomitant]
     Active Substance: HERBALS
     Indication: PRODUCT USED FOR UNKNOWN INDICATION
     Dosage: UNK
     Route: 048
  50. RIBOVIX [Concomitant]
     Indication: PRODUCT USED FOR UNKNOWN INDICATION
     Dosage: UNK
     Route: 048
  51. MAGMITT [Concomitant]
     Active Substance: MAGNESIUM OXIDE
     Indication: PRODUCT USED FOR UNKNOWN INDICATION
     Dosage: UNK
     Route: 048
  52. DECADRON [Concomitant]
     Active Substance: DEXAMETHASONE
     Indication: PRODUCT USED FOR UNKNOWN INDICATION
     Dosage: UNK
     Route: 048

REACTIONS (2)
  - Chemotherapy [Unknown]
  - Thrombocytopenia [Recovered/Resolved]

NARRATIVE: CASE EVENT DATE: 20160518
